FAERS Safety Report 4672756-4 (Version None)
Quarter: 2005Q2

REPORT INFORMATION
  Report Type: 
  Country: None (occurrence: None)
  Receive Date: 20050523
  Receipt Date: 20050509
  Transmission Date: 20051028
  Serious: Yes (Hospitalization)
  Sender: FDA-Public Use
  Company Number: 2005049792

PATIENT
  Age: 26 Year
  Sex: Male
  Weight: 51 kg

DRUGS (7)
  1. SULFASALAZINE [Suspect]
     Indication: COLITIS ULCERATIVE
     Dosage: 4.5 GRAM (1.5 GRAM, 3 IN 1D), ORAL
     Route: 048
     Dates: start: 20050216, end: 20050303
  2. ALL OTHER THERAPEUTIC PRODUCTS (ALL OTHER THERAPEUTIC PRODUCTS) [Concomitant]
  3. FERROMIA (FERROUS CITRATE) [Concomitant]
  4. LOCOID (HYDROCORTISONE BUTYRATE0 [Concomitant]
  5. HIRUDOID (HEPARINOID) [Concomitant]
  6. NERISONE [Concomitant]
  7. RINDERON-VG (BETAMETHASONE VALERATE, GENTAMICIN SULFATE) [Concomitant]

REACTIONS (3)
  - INFECTIOUS MONONUCLEOSIS [None]
  - LYMPHADENOPATHY [None]
  - PYREXIA [None]
